FAERS Safety Report 19820292 (Version 1)
Quarter: 2021Q3

REPORT INFORMATION
  Report Type: Spontaneous
  Country: US (occurrence: US)
  Receive Date: 20210913
  Receipt Date: 20210913
  Transmission Date: 20211014
  Serious: Yes (Death, Other)
  Sender: FDA-Public Use
  Company Number: NVSC2021US204860

PATIENT
  Age: 74 Year
  Sex: Female

DRUGS (2)
  1. RANITIDINE. [Suspect]
     Active Substance: RANITIDINE
     Indication: DYSPEPSIA
     Dosage: 150 MG, QD
     Route: 065
     Dates: start: 200201, end: 201901
  2. RANITIDINE. [Suspect]
     Active Substance: RANITIDINE
     Indication: DYSPEPSIA
     Dosage: 150 MG, QD
     Route: 065
     Dates: start: 200201, end: 201901

REACTIONS (7)
  - Death [Fatal]
  - Colon cancer stage II [Unknown]
  - Breast cancer stage II [Unknown]
  - Incorrect dose administered [Unknown]
  - Colorectal cancer [Unknown]
  - Bladder cancer stage II [Unknown]
  - Uterine cancer [Unknown]

NARRATIVE: CASE EVENT DATE: 20120101
